FAERS Safety Report 7503796-5 (Version None)
Quarter: 2011Q2

REPORT INFORMATION
  Report Type: 
  Country: None (occurrence: None)
  Receive Date: 20110518
  Receipt Date: 20110504
  Transmission Date: 20111010
  Serious: Yes (Hospitalization, Other)
  Sender: FDA-Public Use
  Company Number: 2011MA005738

PATIENT
  Age: 72 Year
  Sex: Female

DRUGS (7)
  1. PSEUDOEPHEDRINE HCL [Concomitant]
  2. MIRTAZAPINE [Suspect]
     Indication: DEPRESSION
     Dosage: 15 MG; PO
     Route: 048
     Dates: start: 20101222, end: 20110301
  3. DIAZEPAM [Concomitant]
  4. BEZAFIBRATE [Concomitant]
  5. LEVOTHYROXINE SODIUM [Concomitant]
  6. NITRAZEPAM [Concomitant]
  7. INFUMORPH [Concomitant]

REACTIONS (1)
  - TEMPORAL ARTERITIS [None]
